FAERS Safety Report 25895381 (Version 1)
Quarter: 2025Q4

REPORT INFORMATION
  Report Type: Spontaneous
  Country: US (occurrence: US)
  Receive Date: 20251008
  Receipt Date: 20251008
  Transmission Date: 20260118
  Serious: Yes (Other)
  Sender: RANBAXY
  Company Number: US-SUN PHARMACEUTICAL INDUSTRIES LTD-2025R1-530084

PATIENT
  Age: 75 Year
  Sex: Female

DRUGS (4)
  1. TRIAMCINOLONE [Suspect]
     Active Substance: TRIAMCINOLONE
     Indication: Osteoarthritis
     Dosage: 1 ML OF 40 MG/ML
     Route: 065
  2. TRIAMCINOLONE [Suspect]
     Active Substance: TRIAMCINOLONE
     Indication: Greater trochanteric pain syndrome
  3. ROPIVACAINE [Concomitant]
     Active Substance: ROPIVACAINE
     Indication: Arthralgia
     Dosage: 4 ML OF 5 MG/ML
     Route: 065
  4. LIDOCAINE [Concomitant]
     Active Substance: LIDOCAINE
     Indication: Arthralgia
     Dosage: 5 ML OF 10 MG/ML
     Route: 065

REACTIONS (1)
  - Osteonecrosis [Recovered/Resolved]
